FAERS Safety Report 17934686 (Version 1)
Quarter: 2020Q2

REPORT INFORMATION
  Report Type: Spontaneous
  Country: US (occurrence: US)
  Receive Date: 20200624
  Receipt Date: 20200624
  Transmission Date: 20200714
  Serious: Yes (Hospitalization)
  Sender: FDA-Public Use
  Company Number: US-ROCHE-2629359

PATIENT
  Age: 79 Year
  Sex: Female

DRUGS (26)
  1. CARVEDILOL. [Concomitant]
     Active Substance: CARVEDILOL
     Route: 065
  2. ELIQUIS [Concomitant]
     Active Substance: APIXABAN
  3. ENTECAVIR. [Concomitant]
     Active Substance: ENTECAVIR
  4. PREDNISONE. [Concomitant]
     Active Substance: PREDNISONE
  5. METHOCARBAMOL. [Concomitant]
     Active Substance: METHOCARBAMOL
  6. METOPROLOL SUCCINATE. [Concomitant]
     Active Substance: METOPROLOL SUCCINATE
  7. MIRTAZAPINE. [Concomitant]
     Active Substance: MIRTAZAPINE
  8. OMEPRAZOLE. [Concomitant]
     Active Substance: OMEPRAZOLE
  9. ESBRIET [Suspect]
     Active Substance: PIRFENIDONE
     Indication: IDIOPATHIC PULMONARY FIBROSIS
     Route: 048
     Dates: start: 20200110
  10. ALPRAZOLAM. [Concomitant]
     Active Substance: ALPRAZOLAM
  11. AMANTADINE. [Concomitant]
     Active Substance: AMANTADINE HYDROCHLORIDE
  12. BIOTIN [Concomitant]
     Active Substance: BIOTIN
  13. CELECOXIB. [Concomitant]
     Active Substance: CELECOXIB
  14. CETRIZINE [Concomitant]
     Active Substance: CETIRIZINE HYDROCHLORIDE
  15. FUROSEMIDE. [Concomitant]
     Active Substance: FUROSEMIDE
  16. AMLODIPINE [Concomitant]
     Active Substance: AMLODIPINE BESYLATE
  17. FLUTICASONE. [Concomitant]
     Active Substance: FLUTICASONE
  18. GABAPENTIN. [Concomitant]
     Active Substance: GABAPENTIN
  19. LEVOTHYROXINE. [Concomitant]
     Active Substance: LEVOTHYROXINE
  20. BACLOFEN. [Concomitant]
     Active Substance: BACLOFEN
  21. PRAMIPEXOLE. [Concomitant]
     Active Substance: PRAMIPEXOLE
  22. AMOXICILLIN;CLAVULANATE POTASSIUM [Concomitant]
     Active Substance: AMOXICILLIN\CLAVULANATE POTASSIUM
  23. CYCLOBENZAPRIN [Concomitant]
     Active Substance: CYCLOBENZAPRINE
  24. IPRATROPIUM [Concomitant]
     Active Substance: IPRATROPIUM
  25. MELATONIN [Concomitant]
     Active Substance: MELATONIN
  26. ONDANSETRON [Concomitant]
     Active Substance: ONDANSETRON

REACTIONS (1)
  - Cardiac disorder [Unknown]

NARRATIVE: CASE EVENT DATE: 20200617
